FAERS Safety Report 7801518-1 (Version None)
Quarter: 2011Q4

REPORT INFORMATION
  Report Type: 
  Country: None (occurrence: None)
  Receive Date: 20111007
  Receipt Date: 20110927
  Transmission Date: 20120403
  Serious: Yes (Other)
  Sender: FDA-Public Use
  Company Number: ZA-JNJFOC-20110912136

PATIENT
  Sex: Female

DRUGS (1)
  1. REVELLEX [Suspect]
     Indication: PRODUCT USED FOR UNKNOWN INDICATION
     Route: 042

REACTIONS (3)
  - DYSPNOEA [None]
  - PALPITATIONS [None]
  - INFUSION RELATED REACTION [None]
